FAERS Safety Report 4914419-3 (Version None)
Quarter: 2006Q1

REPORT INFORMATION
  Report Type: 
  Country: None (occurrence: None)
  Receive Date: 20060113
  Receipt Date: 20051012
  Transmission Date: 20060701
  Serious: No
  Sender: FDA-Public Use
  Company Number: 2005SP001552

PATIENT
  Age: 47 Year
  Sex: Female
  Weight: 58.9676 kg

DRUGS (7)
  1. LUNESTA [Suspect]
     Indication: STRESS
     Dosage: 2 MG;HS;ORAL
     Route: 048
     Dates: start: 20050101, end: 20050101
  2. WELLBUTRIN SR [Concomitant]
  3. TOPAMAX [Concomitant]
  4. SYNTHROID [Concomitant]
  5. OXCARBAZEPINE [Concomitant]
  6. CLONAZEPAM [Concomitant]
  7. ALPRAZOLAM [Concomitant]

REACTIONS (4)
  - DRUG INEFFECTIVE [None]
  - DYSGEUSIA [None]
  - HEADACHE [None]
  - INITIAL INSOMNIA [None]
